FAERS Safety Report 7810090-1 (Version None)
Quarter: 2011Q4

REPORT INFORMATION
  Report Type: 
  Country: None (occurrence: None)
  Receive Date: 20111012
  Receipt Date: 20111004
  Transmission Date: 20120403
  Serious: Yes (Other)
  Sender: FDA-Public Use
  Company Number: PHHY2011DE89204

PATIENT
  Age: 22 Year
  Sex: Female

DRUGS (1)
  1. CHLORMADINONE+ETHINYLESTRADIOL [Suspect]
     Indication: ORAL CONTRACEPTION
     Dosage: UNK
     Route: 048

REACTIONS (7)
  - RETINAL ARTERY OCCLUSION [None]
  - AMAUROSIS FUGAX [None]
  - VISUAL IMPAIRMENT [None]
  - RETINAL OEDEMA [None]
  - HEADACHE [None]
  - VISUAL FIELD DEFECT [None]
  - OPTIC ATROPHY [None]
